FAERS Safety Report 21922920 (Version 3)
Quarter: 2023Q1

REPORT INFORMATION
  Report Type: Spontaneous
  Country: US (occurrence: US)
  Receive Date: 20230128
  Receipt Date: 20230307
  Transmission Date: 20230417
  Serious: Yes (Hospitalization, Other)
  Sender: FDA-Public Use
  Company Number: US-AMGEN-USASP2023012365

PATIENT
  Sex: Male

DRUGS (2)
  1. BLINCYTO [Suspect]
     Active Substance: BLINATUMOMAB
     Indication: Product used for unknown indication
     Dosage: 28 MICROGRAM (DID NOT RAISE THE DOSE FROM 9 TO 28)
     Route: 065
     Dates: start: 20230112, end: 20230118
  2. BLINCYTO [Suspect]
     Active Substance: BLINATUMOMAB
     Dosage: 28 MICROGRAM (DID NOT RAISE THE DOSE FROM 9 TO 28)
     Route: 065
     Dates: start: 20230119

REACTIONS (3)
  - Chills [Recovered/Resolved]
  - Respiratory distress [Recovered/Resolved]
  - Body temperature increased [Recovered/Resolved]

NARRATIVE: CASE EVENT DATE: 20230118
